FAERS Safety Report 6973907-9 (Version None)
Quarter: 2010Q3

REPORT INFORMATION
  Report Type: 
  Country: None (occurrence: None)
  Receive Date: 20100907
  Receipt Date: 20100831
  Transmission Date: 20110219
  Serious: Yes (Hospitalization)
  Sender: FDA-Public Use
  Company Number: TCI2010A03339

PATIENT
  Age: 81 Year
  Sex: Female

DRUGS (1)
  1. LANSOPRAZOLE [Suspect]
     Indication: ABDOMINAL PAIN UPPER
     Dosage: PER ORAL
     Route: 048

REACTIONS (7)
  - COLITIS COLLAGENOUS [None]
  - DECREASED APPETITE [None]
  - DIARRHOEA [None]
  - HYPOPROTEINAEMIA [None]
  - LARGE INTESTINAL ULCER [None]
  - OEDEMA PERIPHERAL [None]
  - SCAR [None]
